FAERS Safety Report 5812018-2 (Version None)
Quarter: 2008Q3

REPORT INFORMATION
  Report Type: 
  Country: None (occurrence: None)
  Receive Date: 20080716
  Receipt Date: 20080707
  Transmission Date: 20090109
  Serious: Yes (Hospitalization)
  Sender: FDA-Public Use
  Company Number: PHHY2008FR13515

PATIENT
  Sex: Male

DRUGS (13)
  1. VOLTAREN [Suspect]
     Indication: INFLUENZA
  2. VOLTAREN [Suspect]
     Indication: COUGH
  3. VOLTAREN [Suspect]
     Indication: PYREXIA
  4. VOLTAREN [Suspect]
     Indication: PRODUCTIVE COUGH
  5. CARTREX [Suspect]
     Indication: INFLUENZA
     Dosage: 100 MG
     Route: 048
  6. CARTREX [Suspect]
     Indication: COUGH
  7. CARTREX [Suspect]
     Indication: PYREXIA
  8. CARTREX [Suspect]
     Indication: PRODUCTIVE COUGH
  9. TERPINE GONNON [Suspect]
     Indication: INFLUENZA
     Dosage: 0.5%
  10. TERPINE GONNON [Suspect]
     Indication: COUGH
  11. TERPINE GONNON [Suspect]
     Indication: PYREXIA
  12. TERPINE GONNON [Suspect]
     Indication: PRODUCTIVE COUGH
  13. SOLUTRICINE [Concomitant]

REACTIONS (3)
  - ARTHRALGIA [None]
  - HYPERTHERMIA [None]
  - RASH PAPULAR [None]
